FAERS Safety Report 6479985-8 (Version None)
Quarter: 2009Q4

REPORT INFORMATION
  Report Type: 
  Country: None (occurrence: None)
  Receive Date: 20091119
  Receipt Date: 20091007
  Transmission Date: 20100525
  Serious: No
  Sender: FDA-Public Use
  Company Number: WAES 0910USA00887

PATIENT
  Age: 51 Year
  Sex: Female

DRUGS (8)
  1. JANUVIA [Suspect]
     Indication: TYPE 2 DIABETES MELLITUS
     Dosage: PO : 100 MG/PM/PO
     Route: 048
     Dates: start: 20090801, end: 20090801
  2. JANUVIA [Suspect]
     Indication: TYPE 2 DIABETES MELLITUS
     Dosage: PO : 100 MG/PM/PO
     Route: 048
     Dates: start: 20090930
  3. JANUMET [Suspect]
     Dosage: 1000MG/50 MG/BID/PO
     Route: 048
  4. METFORMIN HCL [Suspect]
     Dates: start: 20090801
  5. LIPITOR [Concomitant]
  6. GLYBURIDE [Concomitant]
  7. HYDROCHLOROTHIAZIDE [Concomitant]
  8. LISINOPRIL [Concomitant]

REACTIONS (4)
  - ABDOMINAL PAIN UPPER [None]
  - DECREASED APPETITE [None]
  - DIARRHOEA [None]
  - WRONG TECHNIQUE IN DRUG USAGE PROCESS [None]
